FAERS Safety Report 6591242-8 (Version None)
Quarter: 2010Q1

REPORT INFORMATION
  Report Type: 
  Country: None (occurrence: None)
  Receive Date: 20100219
  Receipt Date: 20080501
  Transmission Date: 20100710
  Serious: Yes (Other)
  Sender: FDA-Public Use
  Company Number: AU-PFIZER INC-2010014618

PATIENT
  Sex: Male

DRUGS (4)
  1. CHAMPIX [Suspect]
     Dosage: UNK
  2. VALIUM [Concomitant]
     Dosage: 5 MG, 3X/DAY
  3. DEPTRAN [Concomitant]
     Dosage: 50 MG, 2 NOCTE
  4. SEREPAX [Concomitant]
     Dosage: 30 MG, 2X/DAY

REACTIONS (4)
  - BLINDNESS [None]
  - CONFUSIONAL STATE [None]
  - DEPRESSION [None]
  - MIGRAINE [None]
